FAERS Safety Report 6721160-3 (Version None)
Quarter: 2010Q2

REPORT INFORMATION
  Report Type: 
  Country: None (occurrence: None)
  Receive Date: 20100512
  Receipt Date: 20100505
  Transmission Date: 20101027
  Serious: Yes (Hospitalization)
  Sender: FDA-Public Use
  Company Number: FR-WYE-G06084110

PATIENT
  Age: 81 Year
  Sex: Male

DRUGS (1)
  1. TORISEL [Suspect]
     Dosage: 175 MG (FREQU. UNSP) FROM UNKNOWN DATE, THEN DOSE REDUCED TO 100 MG (FREQU. UNSP), THEN DISCONTINUED
     Route: 042

REACTIONS (3)
  - FATIGUE [None]
  - MUCOSAL INFLAMMATION [None]
  - THROMBOCYTOPENIA [None]
